FAERS Safety Report 10881050 (Version 1)
Quarter: 2015Q1

REPORT INFORMATION
  Report Type: Spontaneous
  Country: DK (occurrence: None)
  Receive Date: 20150226
  Receipt Date: 20150226
  Transmission Date: 20150721
  Serious: Yes (Hospitalization)
  Sender: FDA-Public Use
  Company Number: 20150396

PATIENT
  Age: 74 Year
  Sex: Female

DRUGS (3)
  1. PREDNISOLONE. [Concomitant]
     Active Substance: PREDNISOLONE
  2. METHOTREXATE (METHOTREXATE) [Suspect]
     Active Substance: METHOTREXATE
     Indication: PSORIATIC ARTHROPATHY
     Dates: start: 20101208
  3. OMEPRAZOLE. [Concomitant]
     Active Substance: OMEPRAZOLE

REACTIONS (9)
  - Anaemia [None]
  - Palpitations [None]
  - Fatigue [None]
  - Herpes zoster [None]
  - Dyspnoea [None]
  - Neuralgia [None]
  - Pulmonary function test decreased [None]
  - Gastric ulcer [None]
  - Oral mucosal blistering [None]

NARRATIVE: CASE EVENT DATE: 20110330
